FAERS Safety Report 8504000-1 (Version None)
Quarter: 2012Q3

REPORT INFORMATION
  Report Type: 
  Country: None (occurrence: None)
  Receive Date: 20120711
  Receipt Date: 20120701
  Transmission Date: 20120928
  Serious: Yes (Hospitalization)
  Sender: FDA-Public Use
  Company Number: JP-009507513-1201USA01403

PATIENT

DRUGS (16)
  1. VANIPREVIR [Suspect]
     Dosage: UNK
     Route: 048
     Dates: start: 20120118, end: 20120403
  2. PEGINTERFERON ALFA-2B [Suspect]
     Dosage: UNK
  3. FORTEO [Concomitant]
     Indication: OSTEOPOROSIS
     Dosage: 20 A?G, QD
     Route: 058
     Dates: start: 20110530
  4. FAMOTIDINE [Concomitant]
     Indication: GASTRITIS PROPHYLAXIS
     Dosage: 20 MG, QD
     Route: 048
     Dates: start: 20110627
  5. ALLEGRA [Concomitant]
     Indication: URTICARIA
     Dosage: 60 MG, BID
     Route: 048
     Dates: start: 20110412
  6. VANIPREVIR [Suspect]
     Indication: HEPATITIS C
     Route: 048
     Dates: start: 20111207, end: 20111230
  7. RIBAVIRIN [Suspect]
     Indication: HEPATITIS C
     Dosage: 300 MG, BID
     Route: 048
     Dates: start: 20111207, end: 20111230
  8. PEGINTERFERON ALFA-2B [Suspect]
     Indication: HEPATITIS C
     Dosage: 80 A?G, QW
     Route: 058
     Dates: start: 20111207, end: 20111227
  9. RIBAVIRIN [Suspect]
     Dosage: 300 MG, BID
     Route: 048
     Dates: start: 20120117, end: 20120521
  10. KETOPROFEN [Concomitant]
     Indication: ARTHRALGIA
     Dosage: 60 MG, PRN
     Route: 061
     Dates: start: 20110927
  11. VANIPREVIR [Suspect]
     Dosage: UNK
     Route: 048
     Dates: start: 20120418, end: 20120521
  12. PEGINTERFERON ALFA-2B [Suspect]
     Dosage: 80 A?G, QW
     Route: 058
     Dates: start: 20120117, end: 20120131
  13. PEGINTERFERON ALFA-2B [Suspect]
     Dosage: 54 A?G, QD
     Route: 058
     Dates: start: 20120207, end: 20120207
  14. PEGINTERFERON ALFA-2B [Suspect]
     Dosage: 80 A?G, QW
     Route: 058
     Dates: start: 20120228, end: 20120515
  15. PEGINTERFERON ALFA-2B [Suspect]
     Dosage: 80 A?G, QW
     Route: 058
     Dates: start: 20120214, end: 20120221
  16. CELEBREX [Concomitant]
     Indication: ARTHRALGIA
     Dosage: 100 MG, BID
     Route: 048
     Dates: start: 20110627

REACTIONS (3)
  - CHONDROCALCINOSIS PYROPHOSPHATE [None]
  - LIGAMENT INJURY [None]
  - SPINAL COMPRESSION FRACTURE [None]
